FAERS Safety Report 6425282-6 (Version None)
Quarter: 2009Q4

REPORT INFORMATION
  Report Type: 
  Country: None (occurrence: None)
  Receive Date: 20091103
  Receipt Date: 20091022
  Transmission Date: 20100525
  Serious: Yes (Other)
  Sender: FDA-Public Use
  Company Number: CA-JNJCH-2009028415

PATIENT
  Age: 43 Year
  Sex: Male

DRUGS (2)
  1. PURELL UNSPECIFIED [Suspect]
     Indication: DRUG USE FOR UNKNOWN INDICATION
     Dosage: TEXT:UNSPECIFIED
     Route: 061
  2. ALL OTHER NON-THERAPEUTIC PRODUCTS [Suspect]
     Indication: DRUG USE FOR UNKNOWN INDICATION
     Dosage: TEXT:3 GLASSES OF WINE
     Route: 048

REACTIONS (2)
  - ALCOHOL POISONING [None]
  - IMPAIRED DRIVING ABILITY [None]
